FAERS Safety Report 12142280 (Version 2)
Quarter: 2016Q1

REPORT INFORMATION
  Report Type: Spontaneous
  Country: US (occurrence: US)
  Receive Date: 20160303
  Receipt Date: 20160316
  Transmission Date: 20160526
  Serious: Yes (Hospitalization)
  Sender: FDA-Public Use
  Company Number: US-CELGENEUS-USA-2016030101

PATIENT
  Age: 82 Year
  Sex: Female
  Weight: 93.07 kg

DRUGS (2)
  1. REVLIMID [Suspect]
     Active Substance: LENALIDOMIDE
     Route: 048
     Dates: start: 201602
  2. REVLIMID [Suspect]
     Active Substance: LENALIDOMIDE
     Indication: PLASMA CELL MYELOMA
     Route: 048
     Dates: start: 20160126

REACTIONS (5)
  - Intestinal obstruction [Unknown]
  - Oedema peripheral [Unknown]
  - Adverse event [Unknown]
  - Full blood count decreased [Unknown]
  - Pruritus [Unknown]

NARRATIVE: CASE EVENT DATE: 2016
